FAERS Safety Report 7279267-0 (Version None)
Quarter: 2011Q1

REPORT INFORMATION
  Report Type: 
  Country: None (occurrence: None)
  Receive Date: 20110207
  Receipt Date: 20110129
  Transmission Date: 20110831
  Serious: Yes (Other)
  Sender: FDA-Public Use
  Company Number: US-PFIZER INC-2011023566

PATIENT
  Sex: Female
  Weight: 85.714 kg

DRUGS (1)
  1. ZOLOFT [Suspect]
     Indication: DEPRESSION
     Dosage: 25 MG, 1X/DAY
     Route: 048
     Dates: start: 20081005

REACTIONS (4)
  - ABORTION SPONTANEOUS [None]
  - NAUSEA [None]
  - AMNIOTIC FLUID VOLUME DECREASED [None]
  - CERVICAL INCOMPETENCE [None]
